FAERS Safety Report 18130507 (Version 1)
Quarter: 2020Q3

REPORT INFORMATION
  Report Type: Spontaneous
  Country: US (occurrence: US)
  Receive Date: 20200810
  Receipt Date: 20200810
  Transmission Date: 20201103
  Serious: Yes (Death, Other)
  Sender: FDA-Public Use
  Company Number: US-PFIZER INC-2020303849

PATIENT
  Age: 23 Year
  Sex: Female

DRUGS (6)
  1. SUBOXONE [Suspect]
     Active Substance: BUPRENORPHINE HYDROCHLORIDE\NALOXONE HYDROCHLORIDE
     Dosage: 3 DF, DAILY (THREE SUBOXONE 8 MG PER DAY 90 PER MONTH)
     Dates: start: 2014, end: 2017
  2. XANAX [Suspect]
     Active Substance: ALPRAZOLAM
     Dosage: 4 DF, DAILY (120 PER MONTH)
     Dates: start: 2010, end: 2013
  3. OXY [SALICYLIC ACID] [Suspect]
     Active Substance: SALICYLIC ACID
     Dosage: 2 DF, DAILY (40 MG; 60 PER MONTH)
  4. ADDERALL [Suspect]
     Active Substance: AMPHETAMINE ASPARTATE\AMPHETAMINE SULFATE\DEXTROAMPHETAMINE SACCHARATE\DEXTROAMPHETAMINE SULFATE
     Dosage: 3 DF, DAILY (90 PER MONTH)
  5. OXY [SALICYLIC ACID] [Suspect]
     Active Substance: SALICYLIC ACID
     Dosage: 6 DF, DAILY (180 PER MONTH)
     Dates: start: 2009, end: 2010
  6. OXY [SALICYLIC ACID] [Suspect]
     Active Substance: SALICYLIC ACID
     Dosage: 10 DF, DAILY (300 PER MONTH)
     Dates: start: 2010, end: 2013

REACTIONS (5)
  - Completed suicide [Fatal]
  - Lower limb fracture [Unknown]
  - Near death experience [Unknown]
  - Drug dependence [Unknown]
  - Road traffic accident [Unknown]

NARRATIVE: CASE EVENT DATE: 20170310
